FAERS Safety Report 4437460-6 (Version None)
Quarter: 2004Q3

REPORT INFORMATION
  Report Type: 
  Country: None (occurrence: None)
  Receive Date: 20040830
  Receipt Date: 20031009
  Transmission Date: 20050211
  Serious: Yes (Hospitalization, Disabling, Other)
  Sender: FDA-Public Use
  Company Number: US-MERCK-0310USA01303

PATIENT
  Age: 55 Year
  Sex: Female
  Weight: 91 kg

DRUGS (21)
  1. EXTRA STRENGTH TYLENOL [Concomitant]
     Route: 065
  2. PERCOCET [Concomitant]
     Route: 065
  3. ASPIRIN [Concomitant]
     Route: 065
     Dates: start: 19950101
  4. SOMA [Concomitant]
     Route: 065
  5. CARDIZEM CD [Concomitant]
     Route: 065
  6. FERROUS SULFATE [Concomitant]
     Route: 065
  7. LASIX [Concomitant]
     Route: 065
     Dates: start: 19950101
  8. LASIX [Concomitant]
     Route: 065
     Dates: start: 20010829
  9. LASIX [Concomitant]
     Route: 065
     Dates: start: 20020120
  10. ALEVE [Concomitant]
     Route: 065
  11. NITROGLYCERIN [Concomitant]
     Route: 065
  12. PAXIL [Concomitant]
     Route: 065
     Dates: start: 19950101, end: 20010601
  13. PAXIL [Concomitant]
     Route: 065
     Dates: start: 20010719, end: 20010829
  14. PAXIL [Concomitant]
     Route: 065
     Dates: start: 20020120
  15. PAXIL [Concomitant]
     Route: 065
     Dates: start: 20010829, end: 20020120
  16. K-DUR 10 [Concomitant]
     Route: 065
  17. ACCUPRIL [Concomitant]
     Route: 065
     Dates: start: 20010627, end: 20010714
  18. ACCUPRIL [Concomitant]
     Route: 065
     Dates: start: 20010715, end: 20010821
  19. ACCUPRIL [Concomitant]
     Route: 065
     Dates: start: 20010822, end: 20020120
  20. VIOXX [Suspect]
     Indication: ARTHRITIS
     Route: 048
     Dates: start: 20010101, end: 20011227
  21. VIOXX [Suspect]
     Indication: PAIN
     Route: 048
     Dates: start: 20010101, end: 20011227

REACTIONS (20)
  - ANAEMIA [None]
  - ANGINA UNSTABLE [None]
  - ARTHRITIS [None]
  - BLOOD PRESSURE ABNORMAL [None]
  - CARDIAC VALVE DISEASE [None]
  - CHEST PAIN [None]
  - CORONARY ARTERY OCCLUSION [None]
  - DYSPHAGIA [None]
  - EMOTIONAL DISTRESS [None]
  - FATIGUE [None]
  - GASTROOESOPHAGEAL REFLUX DISEASE [None]
  - HAEMATOMA [None]
  - HYPERCHOLESTEROLAEMIA [None]
  - HYPERTENSION [None]
  - IRRITABLE BOWEL SYNDROME [None]
  - MYOCARDIAL INFARCTION [None]
  - OEDEMA PERIPHERAL [None]
  - OESOPHAGEAL SPASM [None]
  - PAIN [None]
  - TREMOR [None]
